FAERS Safety Report 17663316 (Version 1)
Quarter: 2020Q2

REPORT INFORMATION
  Report Type: Report from Study
  Country: ES (occurrence: ES)
  Receive Date: 20200414
  Receipt Date: 20200414
  Transmission Date: 20200713
  Serious: Yes (Hospitalization)
  Sender: FDA-Public Use
  Company Number: ES-TEVA-2020-ES-1222975

PATIENT
  Age: 58 Year
  Sex: Male

DRUGS (6)
  1. BISOPROLOL (2328A) [Suspect]
     Active Substance: BISOPROLOL
     Indication: ATRIAL FIBRILLATION
     Dosage: 10 MG
     Route: 048
     Dates: start: 20160610
  2. LOSARTAN (7157A) [Interacting]
     Active Substance: LOSARTAN
     Indication: CARDIAC FAILURE
     Dosage: 25 MG
     Route: 048
     Dates: start: 20171006, end: 20171011
  3. ALDOCUMAR 1 MG COMPRIMIDOS, 40 COMPRIMIDOS [Concomitant]
     Active Substance: WARFARIN SODIUM
     Indication: ATRIAL FIBRILLATION
     Route: 048
     Dates: start: 20151020
  4. DIGOXINA (770A) [Concomitant]
     Active Substance: DIGOXIN
     Indication: ATRIAL FIBRILLATION
     Dosage: 0.25 MG
     Route: 048
     Dates: start: 20151122, end: 20171011
  5. FUROSEMIDA (1615A) [Interacting]
     Active Substance: FUROSEMIDE
     Indication: CARDIAC FAILURE
     Dosage: 80 MG
     Route: 048
     Dates: start: 2016, end: 20171011
  6. TORASEMIDA (2351A) [Interacting]
     Active Substance: TORSEMIDE
     Indication: CARDIAC FAILURE
     Dosage: 5 MG
     Route: 048
     Dates: start: 2016, end: 20171011

REACTIONS (3)
  - Hyperkalaemia [Recovered/Resolved]
  - Acute kidney injury [Recovered/Resolved]
  - Drug interaction [Unknown]

NARRATIVE: CASE EVENT DATE: 201710
